FAERS Safety Report 8564580-7 (Version None)
Quarter: 2012Q3

REPORT INFORMATION
  Report Type: 
  Country: None (occurrence: None)
  Receive Date: 20120803
  Receipt Date: 20120731
  Transmission Date: 20120928
  Serious: Yes (Hospitalization)
  Sender: FDA-Public Use
  Company Number: US-PFIZER INC-2012186961

PATIENT
  Sex: Female

DRUGS (1)
  1. PROPRANOLOL HCL [Suspect]
     Dosage: UNK

REACTIONS (1)
  - ATRIAL FIBRILLATION [None]
